FAERS Safety Report 8120183-X (Version None)
Quarter: 2012Q1

REPORT INFORMATION
  Report Type: 
  Country: None (occurrence: None)
  Receive Date: 20120207
  Receipt Date: 20120130
  Transmission Date: 20120608
  Serious: Yes (Hospitalization)
  Sender: FDA-Public Use
  Company Number: US-BAYER-2011-087514

PATIENT
  Age: 35 Year
  Sex: Female

DRUGS (7)
  1. ACETAMINOPHEN [Concomitant]
     Indication: HEADACHE
     Dosage: UNK
     Dates: start: 20090701
  2. SULFAMETHOXAZOLE + TRIMETHOPRIM [Concomitant]
     Dosage: UNK
     Dates: start: 20090528, end: 20090623
  3. LEXAPRO [Concomitant]
     Indication: ANXIETY
     Dosage: 20 MG, UNK
     Dates: start: 20060522, end: 20100517
  4. YASMIN [Suspect]
     Dosage: UNK
     Dates: start: 20041001, end: 20090501
  5. IBUPROFEN (ADVIL) [Concomitant]
     Indication: HEADACHE
     Dosage: UNK
     Dates: start: 20090701
  6. PHENAZOPYRIDINE HCL TAB [Concomitant]
     Dosage: 200 MG, UNK
     Dates: start: 20090528
  7. OXYCODONE HCL AND ACETAMINOPHEN [Concomitant]
     Dosage: UNK
     Dates: start: 20090622

REACTIONS (6)
  - EMOTIONAL DISTRESS [None]
  - INJURY [None]
  - PAIN [None]
  - ABDOMINAL PAIN [None]
  - CHOLELITHIASIS [None]
  - CHOLECYSTITIS [None]
